FAERS Safety Report 5373367-8 (Version None)
Quarter: 2007Q2

REPORT INFORMATION
  Report Type: 
  Country: None (occurrence: None)
  Receive Date: 20070628
  Receipt Date: 20070621
  Transmission Date: 20071010
  Serious: Yes (Hospitalization)
  Sender: FDA-Public Use
  Company Number: US-JNJFOC-20070201674

PATIENT
  Sex: Female
  Weight: 62.6 kg

DRUGS (3)
  1. ORTHO EVRA [Suspect]
     Indication: CONTRACEPTION
     Route: 062
  2. FLEXERIL [Suspect]
     Indication: DRUG USE FOR UNKNOWN INDICATION
  3. DIFLUCAN [Suspect]
     Indication: DRUG USE FOR UNKNOWN INDICATION

REACTIONS (4)
  - CARDIO-RESPIRATORY ARREST [None]
  - CARDIOMYOPATHY [None]
  - ELECTROCARDIOGRAM QT PROLONGED [None]
  - HYPOXIC ENCEPHALOPATHY [None]
